FAERS Safety Report 4702698-7 (Version None)
Quarter: 2005Q2

REPORT INFORMATION
  Report Type: 
  Country: None (occurrence: None)
  Receive Date: 20050624
  Receipt Date: 20050301
  Transmission Date: 20051028
  Serious: No
  Sender: FDA-Public Use
  Company Number: 2005BI008416

PATIENT
  Sex: Female

DRUGS (2)
  1. AVONEX [Suspect]
     Indication: MULTIPLE SCLEROSIS
     Dosage: UNKNOWN;IM
     Route: 030
     Dates: start: 19990301
  2. NATALIZUMAB [Suspect]
     Indication: MULTIPLE SCLEROSIS
     Dosage: UNKNOWN;IV
     Route: 042
     Dates: start: 20050125, end: 20050220

REACTIONS (2)
  - ASEPTIC NECROSIS BONE [None]
  - INFLUENZA LIKE ILLNESS [None]
